FAERS Safety Report 12800190 (Version 1)
Quarter: 2016Q3

REPORT INFORMATION
  Report Type: Spontaneous
  Country: GB (occurrence: GB)
  Receive Date: 20160930
  Receipt Date: 20160930
  Transmission Date: 20161109
  Serious: Yes (Hospitalization, Disabling, Other)
  Sender: FDA-Public Use
  Company Number: GB-B. BRAUN MEDICAL INC.-1057892

PATIENT
  Age: 55 Year
  Sex: Male

DRUGS (13)
  1. LIDOCAINE HYDROCHLORIDE AND DEXTROSE [Suspect]
     Active Substance: DEXTROSE\LIDOCAINE HYDROCHLORIDE
     Indication: FACET JOINT BLOCK
     Route: 051
     Dates: start: 20140904, end: 20140904
  2. CHIROCAINE [Suspect]
     Active Substance: LEVOBUPIVACAINE HYDROCHLORIDE
     Route: 051
     Dates: start: 20140904, end: 20140904
  3. CLONAZEPAM. [Concomitant]
     Active Substance: CLONAZEPAM
  4. FENTANYL. [Suspect]
     Active Substance: FENTANYL
     Route: 051
     Dates: start: 20140904, end: 20140904
  5. EPILIM [Concomitant]
     Active Substance: VALPROATE SODIUM
  6. GABAPENTIN. [Concomitant]
     Active Substance: GABAPENTIN
  7. TRAMADOL. [Concomitant]
     Active Substance: TRAMADOL
  8. MIDAZOLAM [Suspect]
     Active Substance: MIDAZOLAM\MIDAZOLAM HYDROCHLORIDE
     Route: 051
     Dates: start: 20140904, end: 20140904
  9. SODIUM CHLORIDE. [Suspect]
     Active Substance: SODIUM CHLORIDE
     Dates: start: 20140904, end: 20140904
  10. TRIAMCINOLONE [Suspect]
     Active Substance: TRIAMCINOLONE
     Route: 051
     Dates: start: 20140904, end: 20140904
  11. GLUCOSAMINE SULPHATE [Concomitant]
     Active Substance: GLUCOSAMINE
  12. MORPHINE SULFATE. [Concomitant]
     Active Substance: MORPHINE SULFATE
  13. RANITIDINE. [Concomitant]
     Active Substance: RANITIDINE

REACTIONS (30)
  - Circulatory collapse [Unknown]
  - Eye pain [Unknown]
  - Headache [Unknown]
  - Muscle spasms [Unknown]
  - Speech disorder [Unknown]
  - Ageusia [Unknown]
  - Muscle twitching [Unknown]
  - Dysgraphia [Unknown]
  - Erythema [Unknown]
  - Muscular weakness [Unknown]
  - Nightmare [Unknown]
  - Discomfort [Unknown]
  - Skin warm [Unknown]
  - Dysgeusia [Not Recovered/Not Resolved]
  - Hemiparesis [Unknown]
  - Decreased appetite [Unknown]
  - Loss of consciousness [Unknown]
  - Unresponsive to stimuli [Unknown]
  - Hallucination [Unknown]
  - Hypoaesthesia oral [Unknown]
  - Mydriasis [Unknown]
  - Nausea [Unknown]
  - Photosensitivity reaction [Not Recovered/Not Resolved]
  - Facial paralysis [Unknown]
  - Amnesia [Not Recovered/Not Resolved]
  - Ocular hyperaemia [Unknown]
  - Pain [Unknown]
  - Rash [Unknown]
  - Dissociative amnesia [Unknown]
  - Musculoskeletal stiffness [Unknown]
